FAERS Safety Report 6016660-8 (Version None)
Quarter: 2008Q4

REPORT INFORMATION
  Report Type: 
  Country: None (occurrence: None)
  Receive Date: 20081218
  Receipt Date: 20081205
  Transmission Date: 20090506
  Serious: Yes (Other)
  Sender: FDA-Public Use
  Company Number: 2008002932

PATIENT
  Age: 75 Year
  Sex: Male
  Weight: 55.7 kg

DRUGS (12)
  1. ERLOTINIB (ERLOTINIB) (TABLET) (ERLOTINIB) [Suspect]
     Indication: LUNG ADENOCARCINOMA
     Dosage: (150 MG, QD) ,ORAL
     Route: 048
     Dates: start: 20080930, end: 20081014
  2. ALLOPURINOL [Concomitant]
  3. LASIX [Concomitant]
  4. TENORMIN [Concomitant]
  5. ADALAT CC [Concomitant]
  6. PRAVASTATIN [Concomitant]
  7. THEOPHYLLINE [Concomitant]
  8. MUCODYNE (CARBOCISTEINE) [Concomitant]
  9. DORNER (BERAPROST SODIUM) [Concomitant]
  10. SELBEX (TEPRENONE) [Concomitant]
  11. SIGMART (NICORANDIL [Concomitant]
  12. WARFARIN SODIUM [Concomitant]

REACTIONS (2)
  - MYELODYSPLASTIC SYNDROME [None]
  - PANCYTOPENIA [None]
